FAERS Safety Report 8013748-7 (Version None)
Quarter: 2011Q4

REPORT INFORMATION
  Report Type: 
  Country: None (occurrence: None)
  Receive Date: 20111229
  Receipt Date: 20111216
  Transmission Date: 20120403
  Serious: Yes (Hospitalization)
  Sender: FDA-Public Use
  Company Number: US-ELI_LILLY_AND_COMPANY-US201006003450

PATIENT
  Sex: Female
  Weight: 52.6 kg

DRUGS (12)
  1. GINKGO BILOBA [Concomitant]
  2. MULTI-VITAMIN [Concomitant]
     Dosage: UNK, DAILY (1/D)
  3. FORTEO [Suspect]
     Dosage: 20 UG, DAILY (1/D)
  4. FORTEO [Suspect]
     Indication: OSTEOPOROSIS
     Dosage: 20 UG, DAILY (1/D)
     Dates: start: 20091218
  5. FORTEO [Suspect]
     Dosage: 20 UG, DAILY (1/D)
     Dates: start: 20091218
  6. CALCIUM ACETATE [Concomitant]
  7. MAGNESIUM [Concomitant]
  8. SYNTHROID [Concomitant]
     Dosage: 7.5 MG, UNK
  9. VITAMIN D [Concomitant]
     Dosage: 1000 U, UNK
  10. LUTEIN [Concomitant]
  11. FORTEO [Suspect]
     Dosage: 20 UG, DAILY (1/D)
  12. FORTEO [Suspect]
     Dosage: 20 UG, QD

REACTIONS (12)
  - BONE PAIN [None]
  - ARTHRALGIA [None]
  - SURGERY [None]
  - MUSCULOSKELETAL STIFFNESS [None]
  - GAIT DISTURBANCE [None]
  - PAIN IN EXTREMITY [None]
  - DIZZINESS POSTURAL [None]
  - MUSCULAR WEAKNESS [None]
  - MUSCLE SPASMS [None]
  - EYELID PTOSIS [None]
  - HEADACHE [None]
  - DRUG DOSE OMISSION [None]
